FAERS Safety Report 10092086 (Version 1)
Quarter: 2014Q2

REPORT INFORMATION
  Report Type: Spontaneous
  Country: NO (occurrence: NO)
  Receive Date: 20140421
  Receipt Date: 20140421
  Transmission Date: 20141212
  Serious: Yes (Other)
  Sender: FDA-Public Use
  Company Number: NO-MYLANLABS-2014S1008269

PATIENT
  Age: 55 Year
  Sex: Female

DRUGS (6)
  1. TAMOXIFEN CITRATE [Suspect]
     Indication: BREAST CANCER
     Dosage: UNK
     Dates: start: 20131109, end: 20140110
  2. LETROZOL MYLAN [Suspect]
     Indication: BREAST CANCER
     Dosage: UNK
     Dates: start: 20120329
  3. FEMAR [Suspect]
     Indication: BREAST CANCER
     Dosage: UNK
     Dates: start: 20140124
  4. LETROZOL ORIFARM [Suspect]
     Indication: BREAST CANCER
  5. AROMASIN [Suspect]
     Indication: BREAST CANCER
     Dosage: UNK
     Dates: start: 20130610, end: 20131108
  6. CALCIUM [Concomitant]
     Dosage: 100 MG, UNK

REACTIONS (13)
  - Arthralgia [Not Recovered/Not Resolved]
  - Hot flush [Not Recovered/Not Resolved]
  - Joint stiffness [Not Recovered/Not Resolved]
  - Constipation [Not Recovered/Not Resolved]
  - Irritability [Not Recovered/Not Resolved]
  - Thirst [Not Recovered/Not Resolved]
  - Myalgia [Not Recovered/Not Resolved]
  - Hyperhidrosis [Not Recovered/Not Resolved]
  - Headache [Recovered/Resolved]
  - Weight increased [Not Recovered/Not Resolved]
  - Depression [Recovered/Resolved]
  - Hypertension [Unknown]
  - Malaise [Not Recovered/Not Resolved]
